FAERS Safety Report 9580001 (Version 1)
Quarter: 2013Q3

REPORT INFORMATION
  Report Type: Spontaneous
  Country: US (occurrence: None)
  Receive Date: 20130916
  Receipt Date: 20130916
  Transmission Date: 20140515
  Serious: Yes (Other)
  Sender: FDA-Public Use
  Company Number: JPI-P-023335

PATIENT
  Age: 56 Year
  Sex: Female

DRUGS (15)
  1. XYREM [Suspect]
     Indication: FIBROMYALGIA
     Route: 048
     Dates: start: 20120601, end: 20120726
  2. LISINOPRIL [Concomitant]
  3. ATORVASTATIN CALCIUM [Concomitant]
  4. ONDANSETRON HYDROCHLORIDE [Concomitant]
  5. ESOMEPRAZOLE MAGNESIUM [Concomitant]
  6. POLYETHYLENE GLYCOL [Concomitant]
  7. DOCUSATE [Concomitant]
  8. CLONAZEPAM [Concomitant]
  9. QUETIAPINE FUMARATE [Concomitant]
  10. DULOXETINE HYDROCHLORIDE [Concomitant]
  11. PREGABALIN [Concomitant]
  12. MORPHINE (SUSTAINED RELEASE TABLET) [Concomitant]
  13. ASPIRIN [Concomitant]
  14. ALBUTEROL SULFATE [Concomitant]
  15. FLUTICASONE PROPIONATE W/SALMETEROL [Concomitant]

REACTIONS (2)
  - Condition aggravated [None]
  - Hypertension [None]
